FAERS Safety Report 8624244-8 (Version None)
Quarter: 2012Q3

REPORT INFORMATION
  Report Type: 
  Country: None (occurrence: None)
  Receive Date: 20120827
  Receipt Date: 20120814
  Transmission Date: 20120928
  Serious: Yes (Other)
  Sender: FDA-Public Use
  Company Number: JP-SHIRE-ALL1-2012-03853

PATIENT

DRUGS (5)
  1. CALCIUM CARBONATE [Concomitant]
     Indication: PRODUCT USED FOR UNKNOWN INDICATION
     Dosage: UNK, UNKNOWN
     Route: 065
  2. FOSRENOL [Suspect]
     Indication: HYPERPHOSPHATAEMIA
     Dosage: 375-2250 MG, UNKNOWN
     Route: 048
  3. RENAGEL [Suspect]
     Indication: HYPERPHOSPHATAEMIA
     Dosage: 750-9000 MG, UNKNOWN
  4. VITAMIN D [Concomitant]
     Indication: PRODUCT USED FOR UNKNOWN INDICATION
     Dosage: UNK, UNKNOWN
     Route: 065
  5. CINACALCET HYDROCHLORIDE [Concomitant]
     Indication: PRODUCT USED FOR UNKNOWN INDICATION
     Dosage: UNK, UNKNOWN
     Route: 065

REACTIONS (17)
  - FLATULENCE [None]
  - MALAISE [None]
  - CONSTIPATION [None]
  - BILE DUCT STONE [None]
  - VIRAL PERICARDITIS [None]
  - LIVER DISORDER [None]
  - DECREASED APPETITE [None]
  - DYSPEPSIA [None]
  - NAUSEA [None]
  - PERIPHERAL ARTERIAL OCCLUSIVE DISEASE [None]
  - DIARRHOEA [None]
  - ABDOMINAL PAIN UPPER [None]
  - CHOLECYSTITIS ACUTE [None]
  - ABSCESS [None]
  - SHUNT MALFUNCTION [None]
  - VOMITING [None]
  - ABDOMINAL PAIN LOWER [None]
